FAERS Safety Report 14467362 (Version 4)
Quarter: 2018Q2

REPORT INFORMATION
  Report Type: Spontaneous
  Country: NL (occurrence: NL)
  Receive Date: 20180131
  Receipt Date: 20180422
  Transmission Date: 20180711
  Serious: Yes (Hospitalization, Other)
  Sender: FDA-Public Use
  Company Number: NL-APOTEX-2018AP005538

PATIENT
  Age: 23 Year
  Sex: Male

DRUGS (3)
  1. MIRTAZAPINE. [Suspect]
     Active Substance: MIRTAZAPINE
     Indication: PRODUCT USED FOR UNKNOWN INDICATION
     Dosage: 330 MG, UNK
     Route: 065
  2. BACLOFEN. [Suspect]
     Active Substance: BACLOFEN
     Indication: PRODUCT USED FOR UNKNOWN INDICATION
     Dosage: 2700 MG, UNK
     Route: 065
  3. BACLOFEN. [Suspect]
     Active Substance: BACLOFEN
     Dosage: 40 MG, TID
     Route: 065

REACTIONS (7)
  - Respiratory acidosis [Recovering/Resolving]
  - Tachycardia [Recovering/Resolving]
  - Akathisia [Recovering/Resolving]
  - Hyperhidrosis [Recovering/Resolving]
  - Blood pressure increased [Recovering/Resolving]
  - Toxicity to various agents [Unknown]
  - Flushing [Recovering/Resolving]
